FAERS Safety Report 15831629 (Version 2)
Quarter: 2019Q1

REPORT INFORMATION
  Report Type: Spontaneous
  Country: US (occurrence: US)
  Receive Date: 20190116
  Receipt Date: 20190201
  Transmission Date: 20190417
  Serious: Yes (Hospitalization)
  Sender: FDA-Public Use
  Company Number: US-TEVA-2019-US-997316

PATIENT
  Age: 49 Year
  Sex: Male

DRUGS (2)
  1. LOPERAMIDE [Suspect]
     Active Substance: LOPERAMIDE
     Indication: DRUG WITHDRAWAL SYNDROME
     Dosage: 200 TO 400 MG FOR 1.5 YEARS
     Route: 048
  2. DOCUSATE [Concomitant]
     Active Substance: DOCUSATE
     Indication: CONSTIPATION
     Dosage: FREQUENCY: INTERMITTANTLY
     Route: 065

REACTIONS (3)
  - Overdose [Unknown]
  - Electrocardiogram abnormal [Recovering/Resolving]
  - Drug abuse [Unknown]
